FAERS Safety Report 7080105-X (Version None)
Quarter: 2010Q4

REPORT INFORMATION
  Report Type: 
  Country: None (occurrence: None)
  Receive Date: 20101102
  Receipt Date: 20101020
  Transmission Date: 20110411
  Serious: Yes (Other)
  Sender: FDA-Public Use
  Company Number: US-GENENTECH-308638

PATIENT
  Age: 34 Year
  Sex: Female

DRUGS (1)
  1. XOLAIR [Suspect]
     Indication: ASTHMA
     Dosage: 75 MG, 1/MONTH
     Route: 058
     Dates: start: 20100122

REACTIONS (4)
  - INTRAOCULAR PRESSURE INCREASED [None]
  - PARAESTHESIA [None]
  - SWELLING FACE [None]
  - VERTIGO [None]
